FAERS Safety Report 9983771 (Version 1)
Quarter: 2014Q1

REPORT INFORMATION
  Report Type: Spontaneous
  Country: US (occurrence: US)
  Receive Date: 20140307
  Receipt Date: 20140307
  Transmission Date: 20141002
  Serious: Yes (Hospitalization, Other)
  Sender: FDA-Public Use
  Company Number: US-BAYER-2014-030593

PATIENT
  Age: 50 Year
  Sex: Female
  Weight: 113.38 kg

DRUGS (5)
  1. CIPRO [Suspect]
     Indication: PRODUCT USED FOR UNKNOWN INDICATION
     Route: 065
  2. AMPYRA [Suspect]
     Indication: GAIT DISTURBANCE
     Dosage: 10 MG, BID
     Route: 048
     Dates: start: 201308
  3. AUBAGIO [Suspect]
     Indication: MULTIPLE SCLEROSIS
     Dosage: UNK
     Dates: start: 20140112, end: 20140119
  4. METHOTREXATE SODIUM [Concomitant]
     Dosage: UNK
     Dates: start: 2013
  5. PREDNISONE [Concomitant]
     Dosage: UNK
     Dates: start: 201306

REACTIONS (7)
  - Drug hypersensitivity [Unknown]
  - Nephrolithiasis [Recovering/Resolving]
  - Kidney infection [Recovering/Resolving]
  - Back pain [Recovered/Resolved]
  - Muscle spasms [Recovered/Resolved]
  - Movement disorder [Unknown]
  - Discomfort [Unknown]
